FAERS Safety Report 15234325 (Version 2)
Quarter: 2018Q3

REPORT INFORMATION
  Report Type: Other
  Country: IT (occurrence: IT)
  Receive Date: 20180803
  Receipt Date: 20180917
  Transmission Date: 20181010
  Serious: No
  Sender: FDA-Public Use
  Company Number: IT-CELLTRION INC.-2018IT021562

PATIENT

DRUGS (2)
  1. REMSIMA [Suspect]
     Active Substance: INFLIXIMAB
     Indication: CROHN^S DISEASE
     Dosage: 5 MG, 1 CYCLE
     Route: 042
  2. REMSIMA [Suspect]
     Active Substance: INFLIXIMAB
     Indication: CROHN^S DISEASE

REACTIONS (3)
  - Underdose [Unknown]
  - Hyperlipasaemia [Recovered/Resolved with Sequelae]
  - Hyperamylasaemia [Recovered/Resolved with Sequelae]

NARRATIVE: CASE EVENT DATE: 20180626
